FAERS Safety Report 10818118 (Version 3)
Quarter: 2015Q3

REPORT INFORMATION
  Report Type: Spontaneous
  Country: US (occurrence: US)
  Receive Date: 20150218
  Receipt Date: 20150722
  Transmission Date: 20151125
  Serious: Yes (Hospitalization)
  Sender: FDA-Public Use
  Company Number: US-BAYER-2015-024639

PATIENT
  Age: 28 Year
  Sex: Female
  Weight: 94.33 kg

DRUGS (2)
  1. MIRENA [Suspect]
     Active Substance: LEVONORGESTREL
     Indication: CONTRACEPTION
     Dosage: 20 MCG/24HR, CONT
     Route: 015
     Dates: start: 200906, end: 20131126
  2. XANAX [Concomitant]
     Active Substance: ALPRAZOLAM

REACTIONS (13)
  - Abdominal pain [None]
  - Scar [None]
  - Depression [None]
  - Device issue [None]
  - Anxiety [None]
  - Emotional distress [None]
  - Back pain [None]
  - Polycystic ovaries [None]
  - Uterine perforation [None]
  - Device dislocation [None]
  - Injury [None]
  - Device difficult to use [None]
  - Off label use of device [None]

NARRATIVE: CASE EVENT DATE: 2013
